FAERS Safety Report 20003726 (Version 2)
Quarter: 2025Q3

REPORT INFORMATION
  Report Type: Spontaneous
  Country: EU (occurrence: EU)
  Receive Date: 20211028
  Receipt Date: 20250917
  Transmission Date: 20251021
  Serious: Yes (Other)
  Sender: AUROBINDO
  Company Number: EU-RECKITT BENCKISER HEALTHCARE INT LIMITED-RB-96436-2021

PATIENT
  Age: 18 Month
  Sex: Male

DRUGS (1)
  1. IBUPROFEN [Suspect]
     Active Substance: IBUPROFEN
     Indication: Product used for unknown indication
     Route: 065

REACTIONS (4)
  - Oesophageal rupture [Unknown]
  - Tachycardia [Recovered/Resolved]
  - Abnormal faeces [Unknown]
  - Haematemesis [Unknown]
